FAERS Safety Report 5155996-X (Version None)
Quarter: 2006Q4

REPORT INFORMATION
  Report Type: 
  Country: None (occurrence: None)
  Receive Date: 20061122
  Receipt Date: 20061116
  Transmission Date: 20070319
  Serious: Yes (Other)
  Sender: FDA-Public Use
  Company Number: JP-BRISTOL-MYERS SQUIBB COMPANY-13582796

PATIENT
  Age: 6 Year
  Sex: Male

DRUGS (2)
  1. PARAPLATIN [Suspect]
     Indication: NEUROBLASTOMA
     Route: 041
  2. CISPLATIN [Concomitant]

REACTIONS (1)
  - NEPHROGENIC DIABETES INSIPIDUS [None]
